FAERS Safety Report 8212622-0 (Version None)
Quarter: 2012Q1

REPORT INFORMATION
  Report Type: 
  Country: None (occurrence: None)
  Receive Date: 20120315
  Receipt Date: 20120313
  Transmission Date: 20120608
  Serious: Yes (Other)
  Sender: FDA-Public Use
  Company Number: FR-AMGEN-FRASP2012016014

PATIENT
  Age: 59 Year
  Sex: Female

DRUGS (5)
  1. NPLATE [Suspect]
     Indication: MYELODYSPLASTIC SYNDROME
     Dosage: 250 MUG, UNK
     Route: 042
     Dates: start: 20110801, end: 20120105
  2. VALACYCLOVIR HYDROCHLORIDE [Concomitant]
  3. MOTILIUM                           /00498201/ [Concomitant]
  4. POTASSIUM CHLORIDE [Concomitant]
  5. PREDNISONE TAB [Concomitant]

REACTIONS (1)
  - ERYTHEMA MULTIFORME [None]
